FAERS Safety Report 23193485 (Version 10)
Quarter: 2024Q4

REPORT INFORMATION
  Report Type: Other
  Country: US (occurrence: US)
  Receive Date: 20231116
  Receipt Date: 20241125
  Transmission Date: 20250115
  Serious: Yes (Hospitalization, Other)
  Sender: TRAVERE THERAPEUTICS
  Company Number: US-TRAVERE-2023TVT00446

PATIENT
  Age: 61 Year
  Sex: Male

DRUGS (9)
  1. FILSPARI [Suspect]
     Active Substance: SPARSENTAN
     Indication: IgA nephropathy
     Dosage: 400 MG
     Route: 048
     Dates: start: 202307
  2. FILSPARI [Suspect]
     Active Substance: SPARSENTAN
     Indication: Proteinuria
  3. CLONIDINE HYDROCHLORIDE [Concomitant]
     Active Substance: CLONIDINE HYDROCHLORIDE
  4. ATORVASTATIN CALCIUM [Concomitant]
     Active Substance: ATORVASTATIN CALCIUM
  5. TORSEMIDE [Concomitant]
     Active Substance: TORSEMIDE
  6. ELIQUIS [Concomitant]
     Active Substance: APIXABAN
  7. PREDNISONE [Concomitant]
     Active Substance: PREDNISONE
  8. CORICIDIN HBP CHEST CONG-COUGH [Concomitant]
  9. CARTIA XT [Concomitant]
     Active Substance: DILTIAZEM HYDROCHLORIDE

REACTIONS (20)
  - Supraventricular tachycardia [Unknown]
  - Diverticulitis [Unknown]
  - Type 2 diabetes mellitus [Unknown]
  - Aspartate aminotransferase increased [Recovered/Resolved]
  - Alanine aminotransferase increased [Recovered/Resolved]
  - Oedema [None]
  - Blood potassium decreased [Unknown]
  - Muscle spasms [Unknown]
  - Back pain [Unknown]
  - Mobility decreased [Unknown]
  - Oedema peripheral [Unknown]
  - Urine abnormality [None]
  - Drug ineffective [None]
  - Nasopharyngitis [Unknown]
  - Dehydration [Unknown]
  - Weight decreased [Unknown]
  - Dry skin [Unknown]
  - Thirst [Unknown]
  - Fatigue [Unknown]
  - Pollakiuria [Unknown]

NARRATIVE: CASE EVENT DATE: 20231201
